FAERS Safety Report 24414862 (Version 1)
Quarter: 2024Q4

REPORT INFORMATION
  Report Type: Spontaneous
  Country: US (occurrence: US)
  Receive Date: 20241009
  Receipt Date: 20241009
  Transmission Date: 20250115
  Serious: Yes (Life-Threatening, Hospitalization)
  Sender: ACCORD
  Company Number: US-Accord-450018

PATIENT
  Age: 69 Year
  Sex: Female

DRUGS (2)
  1. AMITRIPTYLINE [Suspect]
     Active Substance: AMITRIPTYLINE
     Indication: Insomnia
  2. MONTELUKAST [Concomitant]
     Active Substance: MONTELUKAST
     Indication: Product used for unknown indication

REACTIONS (11)
  - Dilated cardiomyopathy [Recovering/Resolving]
  - Cardiogenic shock [Recovering/Resolving]
  - Organ failure [Recovering/Resolving]
  - Coronary artery disease [Recovering/Resolving]
  - Pulmonary hypertension [Recovering/Resolving]
  - Acute left ventricular failure [Recovering/Resolving]
  - Cardiac failure congestive [Recovering/Resolving]
  - Septic shock [Recovering/Resolving]
  - Cardiac failure chronic [Recovering/Resolving]
  - Acute myocardial infarction [Recovering/Resolving]
  - Hepatic steatosis [Unknown]
